FAERS Safety Report 9188528 (Version 2)
Quarter: 2013Q1

REPORT INFORMATION
  Report Type: Spontaneous
  Country: US (occurrence: US)
  Receive Date: 20130325
  Receipt Date: 20130329
  Transmission Date: 20140127
  Serious: Yes (Death, Other)
  Sender: FDA-Public Use
  Company Number: US-BAXTER-2013BAX010439

PATIENT
  Age: 65 Year
  Sex: Male

DRUGS (1)
  1. DIANEAL LOW CALCIUM [Suspect]
     Indication: PERITONEAL DIALYSIS
     Route: 033
     Dates: end: 20130317

REACTIONS (5)
  - Death [Fatal]
  - Weight decreased [Unknown]
  - Presyncope [Unknown]
  - Dehydration [Unknown]
  - Vomiting [Recovered/Resolved]
